FAERS Safety Report 19514657 (Version 1)
Quarter: 2021Q3

REPORT INFORMATION
  Report Type: Spontaneous
  Country: US (occurrence: US)
  Receive Date: 20210709
  Receipt Date: 20210709
  Transmission Date: 20211014
  Serious: No
  Sender: FDA-Public Use
  Company Number: US-PFIZER INC-2021702212

PATIENT
  Age: 85 Year
  Sex: Male
  Weight: 90.72 kg

DRUGS (1)
  1. VYNDAQEL [Suspect]
     Active Substance: TAFAMIDIS MEGLUMINE
     Indication: AMYLOIDOSIS
     Dosage: UNK, 4X/DAY
     Dates: end: 202103

REACTIONS (2)
  - Off label use [Unknown]
  - Diarrhoea [Unknown]
